FAERS Safety Report 13927289 (Version 6)
Quarter: 2021Q1

REPORT INFORMATION
  Report Type: Spontaneous
  Country: US (occurrence: US)
  Receive Date: 20170901
  Receipt Date: 20210318
  Transmission Date: 20210419
  Serious: Yes (Life-Threatening, Hospitalization, Other)
  Sender: FDA-Public Use
  Company Number: US-JNJFOC-20170827116

PATIENT
  Age: 40 Year
  Sex: Female

DRUGS (2)
  1. CIMETIDINE [Interacting]
     Active Substance: CIMETIDINE
     Indication: DRUG ABUSE
     Route: 065
  2. IMODIUM [Suspect]
     Active Substance: LOPERAMIDE HYDROCHLORIDE
     Indication: DRUG ABUSE
     Route: 065

REACTIONS (5)
  - Cardiac arrest [Recovered/Resolved]
  - Ventricular tachycardia [Recovered/Resolved]
  - Drug abuse [Unknown]
  - Drug interaction [Recovered/Resolved]
  - Torsade de pointes [Recovered/Resolved]
